FAERS Safety Report 13011994 (Version 4)
Quarter: 2019Q4

REPORT INFORMATION
  Report Type: Report from Study
  Country: US (occurrence: US)
  Receive Date: 20161209
  Receipt Date: 20191128
  Transmission Date: 20200122
  Serious: Yes (Hospitalization, Other)
  Sender: FDA-Public Use
  Company Number: US-ROCHE-1699854

PATIENT
  Age: 72 Year
  Sex: Male
  Weight: 82.63 kg

DRUGS (12)
  1. LISINOPRIL. [Concomitant]
     Active Substance: LISINOPRIL
     Indication: HYPERTENSION
     Route: 065
  2. OMEPRAZOLE. [Interacting]
     Active Substance: OMEPRAZOLE
     Indication: DYSPEPSIA
     Route: 065
  3. AMLODIPINE BESYLATE. [Suspect]
     Active Substance: AMLODIPINE BESYLATE
     Indication: BLOOD PRESSURE MEASUREMENT
     Route: 065
  4. SIMVASTATIN. [Concomitant]
     Active Substance: SIMVASTATIN
     Route: 065
  5. VITAMIN C [Concomitant]
     Active Substance: ASCORBIC ACID
  6. ERIVEDGE [Interacting]
     Active Substance: VISMODEGIB
     Route: 048
     Dates: end: 2018
  7. LORAZEPAM. [Concomitant]
     Active Substance: LORAZEPAM
     Indication: PANIC ATTACK
     Route: 065
  8. ERIVEDGE [Interacting]
     Active Substance: VISMODEGIB
     Route: 048
     Dates: start: 20150226
  9. ERIVEDGE [Suspect]
     Active Substance: VISMODEGIB
     Indication: BASAL CELL CARCINOMA
     Route: 048
     Dates: start: 201503
  10. ERIVEDGE [Interacting]
     Active Substance: VISMODEGIB
     Dosage: ONE CAPSULE A DAY FOR 3 WEEKS, AND ONE WEEK OFF
     Route: 048
  11. VITAMIN B COMPLEX [Concomitant]
     Active Substance: CYANOCOBALAMIN\DEXPANTHENOL\NIACINAMIDE\PYRIDOXINE HYDROCHLORIDE\RIBOFLAVIN 5^-PHOSPHATE SODIUM\THIAMINE HYDROCHLORIDE\VITAMIN B COMPLEX
  12. LOSARTAN. [Concomitant]
     Active Substance: LOSARTAN
     Indication: HYPERTENSION
     Route: 065

REACTIONS (19)
  - Loss of consciousness [Recovered/Resolved]
  - Weight increased [Unknown]
  - Blood pressure decreased [Recovered/Resolved]
  - Weight decreased [Recovered/Resolved]
  - Vomiting [Unknown]
  - Dyspepsia [Not Recovered/Not Resolved]
  - Constipation [Recovered/Resolved]
  - Wound haemorrhage [Recovered/Resolved]
  - Decreased appetite [Recovering/Resolving]
  - Transient ischaemic attack [Recovered/Resolved]
  - Dyspepsia [Not Recovered/Not Resolved]
  - Nausea [Unknown]
  - Ageusia [Recovered/Resolved]
  - Haemorrhage [Recovered/Resolved]
  - Tumour haemorrhage [Recovered/Resolved]
  - Asthenia [Recovered/Resolved]
  - Drug interaction [Unknown]
  - Increased appetite [Unknown]
  - Alopecia [Not Recovered/Not Resolved]

NARRATIVE: CASE EVENT DATE: 201503
